FAERS Safety Report 7654829-7 (Version None)
Quarter: 2011Q3

REPORT INFORMATION
  Report Type: 
  Country: None (occurrence: None)
  Receive Date: 20110803
  Receipt Date: 20110803
  Transmission Date: 20111222
  Serious: Yes (Hospitalization)
  Sender: FDA-Public Use
  Company Number: None

PATIENT
  Age: 86 Year
  Sex: Female
  Weight: 68 kg

DRUGS (2)
  1. MULTAQ [Suspect]
     Indication: ATRIAL FIBRILLATION
     Dosage: MULTAQ 400MG BID PO
     Route: 048
     Dates: start: 20110712, end: 20110731
  2. MULTAQ [Suspect]
     Dosage: MULTAQ 100MG QD PO
     Route: 048

REACTIONS (4)
  - ASTHENIA [None]
  - LIVER FUNCTION TEST ABNORMAL [None]
  - CHILLS [None]
  - UNRESPONSIVE TO STIMULI [None]
